FAERS Safety Report 15640060 (Version 1)
Quarter: 2018Q4

REPORT INFORMATION
  Report Type: Spontaneous
  Country: US (occurrence: US)
  Receive Date: 20181120
  Receipt Date: 20181120
  Transmission Date: 20190205
  Serious: Yes (Other)
  Sender: FDA-Public Use
  Company Number: US-TEVA-2018-US-975694

PATIENT
  Sex: Female

DRUGS (1)
  1. METFORMIN [Suspect]
     Active Substance: METFORMIN HYDROCHLORIDE
     Dosage: ONCE IN THE MORNING AND ONCE IN THE EVENING

REACTIONS (3)
  - Constipation [Unknown]
  - Blood glucose increased [Unknown]
  - Drug ineffective [Unknown]
